FAERS Safety Report 25265823 (Version 1)
Quarter: 2025Q2

REPORT INFORMATION
  Report Type: Spontaneous
  Country: IN (occurrence: IN)
  Receive Date: 20250503
  Receipt Date: 20250503
  Transmission Date: 20250716
  Serious: Yes (Other)
  Sender: CADILA
  Company Number: IN-CPL-005251

PATIENT
  Age: 55 Year
  Sex: Male

DRUGS (3)
  1. METRONIDAZOLE [Suspect]
     Active Substance: METRONIDAZOLE
     Indication: Hepatic amoebiasis
  2. CEFTRIAXONE [Concomitant]
     Active Substance: CEFTRIAXONE
     Indication: Hepatic amoebiasis
  3. METRONIDAZOLE [Suspect]
     Active Substance: METRONIDAZOLE
     Indication: Hepatic amoebiasis
     Route: 048

REACTIONS (11)
  - Dysarthria [Recovered/Resolved]
  - Gait disturbance [Recovered/Resolved]
  - Hypoaesthesia [Recovered/Resolved]
  - Paraesthesia [Recovered/Resolved]
  - Nausea [Recovered/Resolved]
  - Vomiting [Recovered/Resolved]
  - Ataxia [Recovered/Resolved]
  - Intention tremor [Recovered/Resolved]
  - Hyperreflexia [Recovered/Resolved]
  - Neurotoxicity [Recovered/Resolved]
  - Demyelination [Recovered/Resolved]
